FAERS Safety Report 20597664 (Version 2)
Quarter: 2022Q1

REPORT INFORMATION
  Report Type: Spontaneous
  Country: US (occurrence: None)
  Receive Date: 20220315
  Receipt Date: 20220316
  Transmission Date: 20220423
  Serious: No
  Sender: FDA-Public Use
  Company Number: US-ROCHE-2910815

PATIENT
  Sex: Female

DRUGS (1)
  1. XOLAIR [Suspect]
     Active Substance: OMALIZUMAB
     Indication: Product used for unknown indication
     Route: 065

REACTIONS (6)
  - Ill-defined disorder [Unknown]
  - Bone swelling [Unknown]
  - Muscle tightness [Unknown]
  - Ill-defined disorder [Unknown]
  - Limb discomfort [Unknown]
  - Pain [Unknown]
